FAERS Safety Report 8507109-1 (Version None)
Quarter: 2012Q3

REPORT INFORMATION
  Report Type: 
  Country: None (occurrence: None)
  Receive Date: 20120712
  Receipt Date: 20120702
  Transmission Date: 20120928
  Serious: Yes (Hospitalization, Other)
  Sender: FDA-Public Use
  Company Number: US-MPIJNJ-2012-04695

PATIENT
  Sex: Male
  Weight: 59.3 kg

DRUGS (11)
  1. DOXORUBICIN HCL [Suspect]
     Indication: MULTIPLE MYELOMA
     Dosage: UNK
     Dates: start: 20120430, end: 20120617
  2. VELCADE [Suspect]
     Indication: MULTIPLE MYELOMA
     Dosage: UNK
     Dates: start: 20120430, end: 20120617
  3. DEXAMETHASONE SODIUM POSPHATE [Suspect]
     Indication: MULTIPLE MYELOMA
     Dosage: UNK
     Dates: start: 20120430, end: 20120617
  4. ZOFRAN [Concomitant]
     Indication: PRODUCT USED FOR UNKNOWN INDICATION
     Dosage: UNK
     Dates: start: 20120430
  5. OXYCONTIN [Concomitant]
     Indication: PRODUCT USED FOR UNKNOWN INDICATION
     Dosage: 10 MG, BID
  6. NEURONTIN [Concomitant]
     Indication: PRODUCT USED FOR UNKNOWN INDICATION
  7. PERCOCET [Concomitant]
     Indication: PRODUCT USED FOR UNKNOWN INDICATION
     Dosage: 10 MG, UNK
  8. THALIDOMIDE [Suspect]
     Indication: MULTIPLE MYELOMA
     Dosage: UNK
     Dates: start: 20120430, end: 20120617
  9. CISPLATIN [Suspect]
     Indication: MULTIPLE MYELOMA
     Dosage: UNK
     Dates: start: 20120430, end: 20120617
  10. ETOPOSIDE [Suspect]
     Indication: MULTIPLE MYELOMA
     Dosage: UNK
     Dates: start: 20120430, end: 20120617
  11. CYCLOPHOSPHAMIDE [Suspect]
     Indication: MULTIPLE MYELOMA
     Dosage: UNK
     Dates: start: 20120430, end: 20120617

REACTIONS (6)
  - PNEUMOCYSTIS JIROVECI PNEUMONIA [None]
  - OESOPHAGITIS [None]
  - PANCYTOPENIA [None]
  - PERFORMANCE STATUS DECREASED [None]
  - ENTEROCOCCAL SEPSIS [None]
  - NEUROPATHY PERIPHERAL [None]
